FAERS Safety Report 5333442-0 (Version None)
Quarter: 2007Q2

REPORT INFORMATION
  Report Type: 
  Country: None (occurrence: None)
  Receive Date: 20070521
  Receipt Date: 20070510
  Transmission Date: 20071010
  Serious: Yes (Death)
  Sender: FDA-Public Use
  Company Number: 233785K07USA

PATIENT
  Age: 55 Year
  Sex: Female

DRUGS (4)
  1. REBIF [Suspect]
     Indication: MULTIPLE SCLEROSIS
     Dosage: SUBCUTANEOUS
     Route: 058
     Dates: start: 20061130, end: 20070421
  2. GABAPENTIN (GABAPETIN) [Concomitant]
  3. LYRICA [Concomitant]
  4. BACLOFEN [Concomitant]

REACTIONS (1)
  - MYOCARDIAL INFARCTION [None]
